FAERS Safety Report 10781022 (Version 1)
Quarter: 2015Q1

REPORT INFORMATION
  Report Type: Spontaneous
  Country: US (occurrence: None)
  Receive Date: 20150206
  Receipt Date: 20150206
  Transmission Date: 20150721
  Serious: Yes (Hospitalization)
  Sender: FDA-Public Use
  Company Number: None

PATIENT
  Age: 57 Year
  Sex: Male

DRUGS (1)
  1. SUNITINIB MALATE (SU011248 L-MALATE) [Suspect]
     Active Substance: SUNITINIB MALATE
     Dates: start: 20150125

REACTIONS (9)
  - Haemoglobin increased [None]
  - Blood phosphorus decreased [None]
  - Nervous system disorder [None]
  - Disease progression [None]
  - Haematocrit increased [None]
  - Central nervous system lesion [None]
  - Platelet count [None]
  - Blood calcium increased [None]
  - Blood pressure increased [None]

NARRATIVE: CASE EVENT DATE: 20150129
